FAERS Safety Report 11368031 (Version 1)
Quarter: 2015Q3

REPORT INFORMATION
  Report Type: Spontaneous
  Country: US (occurrence: US)
  Receive Date: 20150811
  Receipt Date: 20150811
  Transmission Date: 20151125
  Serious: Yes (Other)
  Sender: FDA-Public Use
  Company Number: US-ELI_LILLY_AND_COMPANY-US201310009008

PATIENT
  Age: 64 Year
  Sex: Male

DRUGS (2)
  1. AXIRON [Suspect]
     Active Substance: TESTOSTERONE
     Indication: PRODUCT USED FOR UNKNOWN INDICATION
     Dosage: 30 MG, QD
     Route: 061
  2. ASPIRIN. [Concomitant]
     Active Substance: ASPIRIN
     Dosage: 0.5 DF, UNKNOWN
     Route: 065

REACTIONS (5)
  - Headache [Unknown]
  - Hypertension [Not Recovered/Not Resolved]
  - Tinnitus [Recovering/Resolving]
  - Palpitations [Recovered/Resolved]
  - Insomnia [Recovered/Resolved]
